FAERS Safety Report 7945775-X (Version None)
Quarter: 2011Q4

REPORT INFORMATION
  Report Type: 
  Country: None (occurrence: None)
  Receive Date: 20111129
  Receipt Date: 20111117
  Transmission Date: 20120403
  Serious: Yes (Other)
  Sender: FDA-Public Use
  Company Number: NZ-ROCHE-1014253

PATIENT
  Age: 56 Year
  Sex: Male
  Weight: 49 kg

DRUGS (3)
  1. RIBAVIRIN [Suspect]
  2. PEGASYS [Suspect]
     Indication: HEPATITIS C
     Dates: start: 20110301
  3. RIBAVIRIN [Suspect]
     Indication: HEPATITIS C
     Dates: start: 20110301

REACTIONS (3)
  - ANAEMIA [None]
  - HEPATITIS C [None]
  - DEPRESSION [None]
